FAERS Safety Report 6266321-5 (Version None)
Quarter: 2009Q3

REPORT INFORMATION
  Report Type: 
  Country: None (occurrence: None)
  Receive Date: 20090713
  Receipt Date: 20090708
  Transmission Date: 20100115
  Serious: Yes (Death, Hospitalization, Other)
  Sender: FDA-Public Use
  Company Number: PHHY2009CR25201

PATIENT
  Sex: Male

DRUGS (3)
  1. EXFORGE [Suspect]
     Indication: HYPERTENSION
     Dosage: 160/10 MG PER DAY
     Route: 048
     Dates: start: 20080101
  2. INSULIN [Concomitant]
     Dosage: 40 U IN AM AND 20 U IN PM
     Route: 058
  3. FUROSEMIDE [Concomitant]

REACTIONS (9)
  - AZOTAEMIA [None]
  - CANDIDIASIS [None]
  - INFECTED SKIN ULCER [None]
  - INFECTION [None]
  - MULTI-ORGAN FAILURE [None]
  - PNEUMONIA [None]
  - RESPIRATORY FAILURE [None]
  - SKIN ULCER [None]
  - SPUTUM CULTURE POSITIVE [None]
